FAERS Safety Report 19644715 (Version 1)
Quarter: 2021Q3

REPORT INFORMATION
  Report Type: Spontaneous
  Country: ID (occurrence: ID)
  Receive Date: 20210802
  Receipt Date: 20210802
  Transmission Date: 20211014
  Serious: Yes (Death, Other)
  Sender: FDA-Public Use
  Company Number: ID-B.I. PHARMACEUTICALS,INC./RIDGEFIELD-2021-BI-118583

PATIENT
  Sex: Male

DRUGS (2)
  1. OFEV [Suspect]
     Active Substance: NINTEDANIB
     Indication: PULMONARY FIBROSIS
  2. OFEV [Suspect]
     Active Substance: NINTEDANIB
     Indication: POST-ACUTE COVID-19 SYNDROME
     Route: 065

REACTIONS (5)
  - Sepsis [Unknown]
  - Dyspnoea [Unknown]
  - Condition aggravated [Unknown]
  - Death [Fatal]
  - Off label use [Unknown]

NARRATIVE: CASE EVENT DATE: 20210730
